FAERS Safety Report 5224865-9 (Version None)
Quarter: 2007Q1

REPORT INFORMATION
  Report Type: 
  Country: None (occurrence: None)
  Receive Date: 20070131
  Receipt Date: 20070125
  Transmission Date: 20070707
  Serious: Yes (Other)
  Sender: FDA-Public Use
  Company Number: 2006UW25572

PATIENT
  Age: 63 Year
  Sex: Female
  Weight: 95.1 kg

DRUGS (23)
  1. ARIMIDEX [Suspect]
     Indication: BREAST CANCER FEMALE
     Route: 048
     Dates: start: 20050101
  2. CATAPRES [Concomitant]
  3. COREG [Concomitant]
  4. NEURONTIN [Concomitant]
  5. BENICAR [Concomitant]
  6. IRON [Concomitant]
  7. ALLOPURINOL SODIUM [Concomitant]
  8. SYNTHROID [Concomitant]
  9. PROCRIT [Concomitant]
  10. B-12 [Concomitant]
  11. ACCOLATE [Concomitant]
     Route: 048
  12. HYDROCHLOROTHIAZIDE [Concomitant]
     Route: 048
  13. PREVACID [Concomitant]
     Route: 048
  14. COLCHICINE [Concomitant]
     Route: 048
  15. VOLTAREN [Concomitant]
  16. QUININE SULFATE [Concomitant]
  17. DIOVAN [Concomitant]
  18. FLEXERIL [Concomitant]
  19. CLARINEX [Concomitant]
  20. DEMADEX [Concomitant]
  21. AMBIEN [Concomitant]
  22. ASPIRIN [Concomitant]
  23. FOSAMAX [Concomitant]

REACTIONS (8)
  - ARTHRALGIA [None]
  - ARTHRITIS [None]
  - HEADACHE [None]
  - JOINT INJURY [None]
  - OSTEOPENIA [None]
  - OSTEOPOROSIS [None]
  - RENAL IMPAIRMENT [None]
  - RIB FRACTURE [None]
